FAERS Safety Report 11538427 (Version 2)
Quarter: 2015Q3

REPORT INFORMATION
  Report Type: Report from Study
  Country: US (occurrence: US)
  Receive Date: 20150922
  Receipt Date: 20150924
  Transmission Date: 20151125
  Serious: Yes (Hospitalization)
  Sender: FDA-Public Use
  Company Number: US-ABBVIE-15P-163-1465471-00

PATIENT
  Age: 70 Year
  Sex: Female

DRUGS (1)
  1. DUOPA [Suspect]
     Active Substance: CARBIDOPA\LEVODOPA
     Indication: PARKINSON^S DISEASE
     Route: 050
     Dates: start: 20150629

REACTIONS (5)
  - Hypophagia [Unknown]
  - Device dislocation [Unknown]
  - Hip arthroplasty [Unknown]
  - Nausea [Unknown]
  - Procedural pain [Unknown]

NARRATIVE: CASE EVENT DATE: 201508
